FAERS Safety Report 23452783 (Version 2)
Quarter: 2024Q1

REPORT INFORMATION
  Report Type: Report from Study
  Country: US (occurrence: US)
  Receive Date: 20240129
  Receipt Date: 20240213
  Transmission Date: 20240410
  Serious: Yes (Hospitalization)
  Sender: FDA-Public Use
  Company Number: US-GILEAD-2024-0658257

PATIENT
  Age: 59 Year
  Sex: Female

DRUGS (40)
  1. AZTREONAM LYSINE [Suspect]
     Active Substance: AZTREONAM LYSINE
     Indication: Cystic fibrosis
     Dosage: 1 DOSAGE FORM, TID
     Route: 055
     Dates: start: 20150421
  2. AZTREONAM LYSINE [Suspect]
     Active Substance: AZTREONAM LYSINE
     Dosage: 1 DOSAGE FORM, TID
     Route: 055
     Dates: start: 20230805
  3. TRIKAFTA [Concomitant]
     Active Substance: ELEXACAFTOR\IVACAFTOR\TEZACAFTOR
  4. ACID REDUCER [Concomitant]
  5. ADVAIR HFA [Concomitant]
     Active Substance: FLUTICASONE PROPIONATE\SALMETEROL XINAFOATE
  6. APAP/CODEINE PHOSPHATE [Concomitant]
  7. BENTYL [Concomitant]
     Active Substance: DICYCLOMINE HYDROCHLORIDE
  8. BENZONATATE [Concomitant]
     Active Substance: BENZONATATE
  9. CALCIUM [Concomitant]
     Active Substance: CALCIUM
  10. CARAFATE [Concomitant]
     Active Substance: SUCRALFATE
  11. CLARITIN [Concomitant]
     Active Substance: LORATADINE
  12. CREON [Concomitant]
     Active Substance: PANCRELIPASE AMYLASE\PANCRELIPASE LIPASE\PANCRELIPASE PROTEASE
  13. CRESEMBA [Concomitant]
     Active Substance: ISAVUCONAZONIUM SULFATE
  14. CYCLOBENZAPRINE [Concomitant]
     Active Substance: CYCLOBENZAPRINE
  15. ELIQUIS [Concomitant]
     Active Substance: APIXABAN
  16. FAMOTIDINE [Concomitant]
     Active Substance: FAMOTIDINE
  17. FLONASE [Concomitant]
     Active Substance: FLUTICASONE PROPIONATE
  18. GUAFENSIN [Concomitant]
  19. LEVALBUTEROL HYDROCHLORIDE [Concomitant]
     Active Substance: LEVALBUTEROL HYDROCHLORIDE
  20. LEVAQUIN [Concomitant]
     Active Substance: LEVOFLOXACIN
  21. LORATADINE [Concomitant]
     Active Substance: LORATADINE
  22. MELATONIN [Concomitant]
     Active Substance: MELATONIN
  23. METAXALONE [Concomitant]
     Active Substance: METAXALONE
  24. MUCINEX [Concomitant]
     Active Substance: GUAIFENESIN
  25. OXYCODONE/APAP [Concomitant]
     Active Substance: ACETAMINOPHEN\OXYCODONE HYDROCHLORIDE
  26. PANCREAZE [Concomitant]
     Active Substance: PANCRELIPASE AMYLASE\PANCRELIPASE LIPASE\PANCRELIPASE PROTEASE
  27. ACETAMINOPHEN\OXYCODONE HYDROCHLORIDE\OXYCODONE TEREPHTHALATE [Concomitant]
     Active Substance: ACETAMINOPHEN\OXYCODONE HYDROCHLORIDE\OXYCODONE TEREPHTHALATE
  28. PREDNISONE [Concomitant]
     Active Substance: PREDNISONE
  29. PROMETHAZINE [Concomitant]
     Active Substance: PROMETHAZINE HYDROCHLORIDE
  30. PULMOZYME [Concomitant]
     Active Substance: DORNASE ALFA
  31. SALINE [BORIC ACID] [Concomitant]
  32. SEROQUEL [Concomitant]
     Active Substance: QUETIAPINE FUMARATE
  33. SERTRALINE [Concomitant]
     Active Substance: SERTRALINE HYDROCHLORIDE
  34. SODIUM CHLORIDE [Concomitant]
     Active Substance: SODIUM CHLORIDE
  35. TOPAMAX [Concomitant]
     Active Substance: TOPIRAMATE
  36. TRAMADOL [Concomitant]
     Active Substance: TRAMADOL\TRAMADOL HYDROCHLORIDE
  37. TRAZODONE [Concomitant]
     Active Substance: TRAZODONE HYDROCHLORIDE
  38. URSODIOL [Concomitant]
     Active Substance: URSODIOL
  39. XIFAXAN [Concomitant]
     Active Substance: RIFAXIMIN
  40. ZOLOFT [Concomitant]
     Active Substance: SERTRALINE HYDROCHLORIDE

REACTIONS (2)
  - Cystic fibrosis respiratory infection suppression [Unknown]
  - Product dose omission issue [Unknown]
